FAERS Safety Report 4816567-5 (Version None)
Quarter: 2005Q4

REPORT INFORMATION
  Report Type: 
  Country: None (occurrence: None)
  Receive Date: 20051031
  Receipt Date: 20051031
  Transmission Date: 20060501
  Serious: Yes (Life-Threatening)
  Sender: FDA-Public Use
  Company Number: None

PATIENT
  Age: 60 Year
  Sex: Male
  Weight: 82 kg

DRUGS (2)
  1. QUETIAPINE FUMARATE [Suspect]
     Indication: BIPOLAR DISORDER
     Dosage: 50 MG QAM PO ; 100MG QHS PO
     Route: 048
     Dates: start: 20051024, end: 20051028
  2. QUETIAPINE FUMARATE [Suspect]
     Indication: MANIA
     Dosage: 50 MG QAM PO ; 100MG QHS PO
     Route: 048
     Dates: start: 20051024, end: 20051028

REACTIONS (3)
  - BLOOD CREATINE PHOSPHOKINASE INCREASED [None]
  - COGWHEEL RIGIDITY [None]
  - MUSCULOSKELETAL STIFFNESS [None]
